FAERS Safety Report 16354114 (Version 4)
Quarter: 2019Q4

REPORT INFORMATION
  Report Type: Report from Study
  Country: US (occurrence: US)
  Receive Date: 20190524
  Receipt Date: 20191029
  Transmission Date: 20200122
  Serious: Yes (Life-Threatening, Hospitalization, Other)
  Sender: FDA-Public Use
  Company Number: US-ACTELION-A-US2019-187386

PATIENT
  Age: 61 Year
  Sex: Female
  Weight: 117.91 kg

DRUGS (7)
  1. OFEV [Suspect]
     Active Substance: NINTEDANIB
     Indication: LUNG NEOPLASM MALIGNANT
     Dosage: 150 MG, BID
     Route: 065
     Dates: start: 201903
  2. DIGOXIN. [Concomitant]
     Active Substance: DIGOXIN
     Dosage: 0.125 MG
     Dates: start: 20190803
  3. TRACLEER [Suspect]
     Active Substance: BOSENTAN
     Indication: PULMONARY HYPERTENSION
     Dosage: 125 MG, BID
     Route: 048
     Dates: start: 2013
  4. OFEV [Suspect]
     Active Substance: NINTEDANIB
     Dosage: 150 UNK
     Route: 065
     Dates: start: 20190506
  5. SOTALOL. [Suspect]
     Active Substance: SOTALOL
     Indication: PRODUCT USED FOR UNKNOWN INDICATION
     Dosage: 80 MG, BID
     Route: 065
     Dates: start: 201906
  6. FLECAINIDE [Concomitant]
     Active Substance: FLECAINIDE
     Dosage: 50 MG, BID
     Dates: start: 20190803
  7. MIDODRINE [Concomitant]
     Active Substance: MIDODRINE
     Dosage: 5 MG, TID
     Dates: start: 20190803

REACTIONS (6)
  - Lung neoplasm malignant [Not Recovered/Not Resolved]
  - Pericardial effusion [Unknown]
  - Sciatica [Unknown]
  - Malaise [Unknown]
  - Heart rate increased [Unknown]
  - Pericardial drainage [Unknown]

NARRATIVE: CASE EVENT DATE: 201906
